FAERS Safety Report 9448673 (Version 1)
Quarter: 2013Q3

REPORT INFORMATION
  Report Type: Spontaneous
  Country: NZ (occurrence: NZ)
  Receive Date: 20130808
  Receipt Date: 20130808
  Transmission Date: 20140515
  Serious: Yes (Hospitalization, Other)
  Sender: FDA-Public Use
  Company Number: NZ-BAXTER-2013BAX030616

PATIENT
  Age: 27 Year
  Sex: Female

DRUGS (3)
  1. EXTRANEAL, 7.5%W/V, DIALYSIS SOLUTION [Suspect]
     Indication: RENAL FAILURE CHRONIC
     Route: 033
  2. DIANEAL PD-2 PERITONEAL [Suspect]
     Indication: RENAL FAILURE CHRONIC
     Route: 033
  3. DIANEAL PD-2 [Suspect]
     Indication: RENAL FAILURE CHRONIC
     Route: 033

REACTIONS (3)
  - Pancreatitis necrotising [Recovered/Resolved]
  - Pseudocyst [Unknown]
  - Pancreatitis relapsing [Recovered/Resolved]
